FAERS Safety Report 4839285-6 (Version None)
Quarter: 2005Q4

REPORT INFORMATION
  Report Type: 
  Country: None (occurrence: None)
  Receive Date: 20051031
  Receipt Date: 20050119
  Transmission Date: 20060501
  Serious: No
  Sender: FDA-Public Use
  Company Number: 200510504US

PATIENT
  Age: 50 Year
  Sex: Male

DRUGS (1)
  1. KETEK [Suspect]
     Indication: SINUSITIS
     Dosage: TWO 400 MG TABLETS MG QD PO
     Route: 048
     Dates: start: 20050114, end: 20050118

REACTIONS (11)
  - COLOUR BLINDNESS [None]
  - CORRECTIVE LENS USER [None]
  - DIPLOPIA [None]
  - FEELING ABNORMAL [None]
  - HEADACHE [None]
  - INTRAOCULAR PRESSURE INCREASED [None]
  - PHOTOPSIA [None]
  - STRABISMUS [None]
  - VISION BLURRED [None]
  - VISUAL DISTURBANCE [None]
  - VOMITING [None]
